FAERS Safety Report 16081293 (Version 1)
Quarter: 2019Q1

REPORT INFORMATION
  Report Type: Spontaneous
  Country: HU (occurrence: HU)
  Receive Date: 20190316
  Receipt Date: 20190316
  Transmission Date: 20190418
  Serious: Yes (Other)
  Sender: FDA-Public Use
  Company Number: HU-ACCORD-112636

PATIENT
  Age: 60 Year
  Sex: Female

DRUGS (12)
  1. VITAMIN D3 [Concomitant]
     Active Substance: CHOLECALCIFEROL
     Indication: PROPHYLAXIS
     Dosage: STRENGTH: 3000 IU,  NOT BIOEXTRA
     Route: 048
  2. OXYCODONE [Concomitant]
     Active Substance: OXYCODONE
     Indication: PAIN
     Dosage: STRENGTH: 20 MG
     Route: 048
  3. SOLU-MEDROL [Concomitant]
     Active Substance: METHYLPREDNISOLONE SODIUM SUCCINATE
     Indication: PREMEDICATION
     Dosage: STRENGTH: 125 MG,  125 MG PER CHEMOTHERAPY
     Route: 042
  4. CITROKALCIUM [Concomitant]
     Indication: PROPHYLAXIS
     Dosage: STRENGTH: 200 MG
     Route: 048
  5. CARVEDILOL. [Concomitant]
     Active Substance: CARVEDILOL
     Indication: BLOOD PRESSURE MANAGEMENT
     Dosage: STRENGTH: 12.5 MG
     Route: 048
  6. FOLINIC ACID [Concomitant]
     Active Substance: LEUCOVORIN
     Indication: ANAL CANCER
     Dosage: STRENGTH 350 MG MILLIGRAM, 350 MG ON DAYS 1 AND 2 OF THE BIWEEKLY CHEMOTHERAPY TREATMENT CYCLE
     Route: 042
     Dates: start: 20180309
  7. CLONAZEPAM TARCHOMIN [Concomitant]
     Indication: PANIC DISORDER
     Dosage: STRENGTH: 0.5 MG
     Route: 048
  8. OXALIPLATIN. [Suspect]
     Active Substance: OXALIPLATIN
     Indication: ANAL CANCER
     Dosage: STRENGTH: 130 MG, 130 MG BIWEEKLY
     Route: 042
     Dates: start: 20180912, end: 20180926
  9. NEO-FERRO FOLGAMMA [Concomitant]
     Indication: ANAEMIA
     Dosage: STRENGTH: 114 MG, 1 DF 114 MG FERROUS SULPHATE, DRIED+0.8 MG FOLIC ACID
     Route: 048
  10. BENFOGAMMA [Concomitant]
     Indication: PROPHYLAXIS
     Route: 048
  11. FLUOROURACIL. [Concomitant]
     Active Substance: FLUOROURACIL
     Indication: ANAL CANCER
     Dosage: STRENGTH: 700 MG, 700 MG ON DAYS 1 AND 2 OF THE BIWEEKLY CHEMOTHERAPY TREATMENT CYCLE
     Route: 042
  12. ONDANSETRON [Concomitant]
     Active Substance: ONDANSETRON
     Indication: PREMEDICATION
     Dosage: 8 MG ONCE PER CHEMOTHERAPY TREATMENT
     Route: 042

REACTIONS (9)
  - Burning sensation [Recovered/Resolved]
  - Nausea [Recovered/Resolved]
  - Malaise [Recovered/Resolved]
  - Vomiting [Recovered/Resolved]
  - Hyperhidrosis [Recovered/Resolved]
  - Pain in extremity [Recovered/Resolved]
  - Pruritus [Recovered/Resolved]
  - Hypoaesthesia [Recovered/Resolved]
  - Abdominal pain lower [Recovered/Resolved]

NARRATIVE: CASE EVENT DATE: 20180926
